FAERS Safety Report 16759951 (Version 1)
Quarter: 2019Q3

REPORT INFORMATION
  Report Type: Spontaneous
  Country: CH (occurrence: CH)
  Receive Date: 20190830
  Receipt Date: 20190830
  Transmission Date: 20191005
  Serious: Yes (Other)
  Sender: FDA-Public Use
  Company Number: CH-PFIZER INC-2019369741

PATIENT
  Age: 63 Year
  Sex: Female
  Weight: 81.4 kg

DRUGS (15)
  1. LEPONEX [Suspect]
     Active Substance: CLOZAPINE
     Dosage: 50 MG, DAILY
     Dates: end: 20190225
  2. FYCOMPA [Suspect]
     Active Substance: PERAMPANEL
     Dosage: 8 MG, DAILY
     Route: 048
  3. TRILEPTAL [Suspect]
     Active Substance: OXCARBAZEPINE
     Dosage: 1200 MG, DAILY
     Route: 048
     Dates: start: 20190121
  4. URBANYL [Concomitant]
     Active Substance: CLOBAZAM
     Dosage: 5 MG, DAILY
     Route: 048
     Dates: start: 20190218
  5. LYRICA [Suspect]
     Active Substance: PREGABALIN
     Dosage: 50 MG, UNK
     Route: 048
     Dates: start: 20190225, end: 20190301
  6. SERALIN MEPHA [Suspect]
     Active Substance: SERTRALINE HYDROCHLORIDE
     Dosage: 100 MG, DAILY
     Route: 048
  7. RISPERDAL [Suspect]
     Active Substance: RISPERIDONE
     Dosage: 2.5 MG, DAILY
     Route: 048
     Dates: start: 20190225
  8. CLOPIDOGREL [Concomitant]
     Active Substance: CLOPIDOGREL BISULFATE
     Dosage: 75 MG, DAILY
     Route: 048
  9. SERALIN MEPHA [Suspect]
     Active Substance: SERTRALINE HYDROCHLORIDE
     Dosage: 75 MG, DAILY
     Dates: start: 20190228
  10. RISPERDAL [Suspect]
     Active Substance: RISPERIDONE
     Dosage: 2 MG, DAILY
  11. ABILIFY [Suspect]
     Active Substance: ARIPIPRAZOLE
     Dosage: 10 MG, DAILY
     Route: 048
     Dates: end: 20190212
  12. URBANYL [Concomitant]
     Active Substance: CLOBAZAM
     Dosage: 10 MG, DAILY
  13. KEPPRA [Suspect]
     Active Substance: LEVETIRACETAM
     Dosage: 2000 MG, DAILY
     Route: 048
  14. LEPONEX [Suspect]
     Active Substance: CLOZAPINE
     Dosage: 25 MG, DAILY
     Route: 048
     Dates: start: 20190226
  15. SERALIN MEPHA [Suspect]
     Active Substance: SERTRALINE HYDROCHLORIDE
     Dosage: 50 MG, DAILY
     Dates: start: 20190301

REACTIONS (1)
  - Hyponatraemia [Recovered/Resolved]

NARRATIVE: CASE EVENT DATE: 20190228
